FAERS Safety Report 6445356-3 (Version None)
Quarter: 2009Q4

REPORT INFORMATION
  Report Type: 
  Country: None (occurrence: None)
  Receive Date: 20091118
  Receipt Date: 20091111
  Transmission Date: 20100525
  Serious: Yes (Other)
  Sender: FDA-Public Use
  Company Number: BR-ABBOTT-09P-020-0608070-00

PATIENT
  Sex: Female
  Weight: 80 kg

DRUGS (5)
  1. HUMIRA [Suspect]
     Indication: RHEUMATOID ARTHRITIS
     Dosage: INDUCTION DOSE: 80MG-40MG - 15 DAYS
     Route: 058
     Dates: start: 20070301
  2. HUMIRA [Suspect]
     Indication: CROHN'S DISEASE
  3. FEXOFENADINE HYDROCHLORIDE [Concomitant]
     Indication: LARYNGEAL OEDEMA
     Route: 048
     Dates: start: 20081001
  4. INFLIXIMAB [Concomitant]
     Indication: CROHN'S DISEASE
     Dates: start: 20070301
  5. CLINDAMYCIN HYDROCHLORIDE [Concomitant]
     Indication: CROHN'S DISEASE
     Route: 048
     Dates: start: 20070301

REACTIONS (3)
  - BLOOD CHOLESTEROL INCREASED [None]
  - EYE HAEMORRHAGE [None]
  - LARYNGEAL OEDEMA [None]
